FAERS Safety Report 20913091 (Version 1)
Quarter: 2022Q2

REPORT INFORMATION
  Report Type: Spontaneous
  Country: US (occurrence: None)
  Receive Date: 20220603
  Receipt Date: 20220603
  Transmission Date: 20220721
  Serious: No
  Sender: FDA-Public Use
  Company Number: None

PATIENT

DRUGS (4)
  1. NAPROXEN [Suspect]
     Active Substance: NAPROXEN
  2. PREDNISONE [Suspect]
     Active Substance: PREDNISONE
  3. METHOCARBAMOL [Suspect]
     Active Substance: METHOCARBAMOL
  4. CEPHALEXIN [Suspect]
     Active Substance: CEPHALEXIN

REACTIONS (2)
  - Rash [None]
  - Anal incontinence [None]
